FAERS Safety Report 9799419 (Version 1)
Quarter: 2014Q1

REPORT INFORMATION
  Report Type: Spontaneous
  Country: US (occurrence: None)
  Receive Date: 20140103
  Receipt Date: 20140103
  Transmission Date: 20141002
  Serious: Yes (Other)
  Sender: FDA-Public Use
  Company Number: None

PATIENT
  Age: 27 Year
  Sex: Female
  Weight: 88.6 kg

DRUGS (4)
  1. CARBOPLATIN [Suspect]
     Dosage: 450 MG D1 9 2/DAYS
     Route: 042
     Dates: start: 20131217
  2. TAXOL [Concomitant]
  3. AVASTIN [Concomitant]
  4. CARBOPLATIN [Concomitant]

REACTIONS (3)
  - Diarrhoea [None]
  - Abdominal pain [None]
  - Erythema [None]
